FAERS Safety Report 10250796 (Version 1)
Quarter: 2014Q2

REPORT INFORMATION
  Report Type: Spontaneous
  Country: DE (occurrence: DE)
  Receive Date: 20140620
  Receipt Date: 20140620
  Transmission Date: 20141212
  Serious: Yes (Other)
  Sender: FDA-Public Use
  Company Number: DE-TEVA-488084GER

PATIENT
  Age: 73 Year
  Sex: Male
  Weight: 91 kg

DRUGS (2)
  1. BICALUTAMID [Suspect]
     Indication: HORMONE-REFRACTORY PROSTATE CANCER
     Dosage: STANDARD
     Dates: start: 201210
  2. XOFIGO [Suspect]
     Indication: HORMONE-REFRACTORY PROSTATE CANCER
     Dosage: 0,05 MBQ/KG BODY WEIGHT
     Route: 042
     Dates: start: 20140512

REACTIONS (1)
  - Brain oedema [Recovering/Resolving]
